FAERS Safety Report 10288678 (Version 2)
Quarter: 2015Q3

REPORT INFORMATION
  Report Type: Spontaneous
  Country: US (occurrence: US)
  Receive Date: 20140709
  Receipt Date: 20150817
  Transmission Date: 20151125
  Serious: No
  Sender: FDA-Public Use
  Company Number: US-GILEAD-2013-0083446

PATIENT
  Age: 64 Year
  Sex: Male

DRUGS (1)
  1. LETAIRIS [Suspect]
     Active Substance: AMBRISENTAN
     Indication: PRODUCT USED FOR UNKNOWN INDICATION
     Dosage: 5 MG, QD
     Dates: start: 20130521

REACTIONS (7)
  - Walking aid user [Not Recovered/Not Resolved]
  - Fatigue [Unknown]
  - Nocturnal dyspnoea [Unknown]
  - Headache [Unknown]
  - Dizziness [Not Recovered/Not Resolved]
  - Musculoskeletal discomfort [Unknown]
  - Oedema peripheral [Not Recovered/Not Resolved]
